FAERS Safety Report 11118224 (Version 4)
Quarter: 2015Q4

REPORT INFORMATION
  Report Type: Spontaneous
  Country: JP (occurrence: JP)
  Receive Date: 20150518
  Receipt Date: 20151125
  Transmission Date: 20160304
  Serious: Yes (Other)
  Sender: FDA-Public Use
  Company Number: JP-TAKEDA-2015MPI003251

PATIENT

DRUGS (1)
  1. VELCADE [Suspect]
     Active Substance: BORTEZOMIB
     Indication: PLASMA CELL MYELOMA
     Dosage: 1.3 MG/M2, QD
     Route: 058
     Dates: start: 20150422, end: 20150507

REACTIONS (1)
  - Corneal opacity [Recovering/Resolving]

NARRATIVE: CASE EVENT DATE: 20150507
